FAERS Safety Report 9644484 (Version 2)
Quarter: 2013Q4

REPORT INFORMATION
  Report Type: Spontaneous
  Country: BR (occurrence: BR)
  Receive Date: 20131025
  Receipt Date: 20131025
  Transmission Date: 20140711
  Serious: Yes (Hospitalization)
  Sender: FDA-Public Use
  Company Number: BR-ACCORD-020018

PATIENT
  Age: 63 Year
  Sex: Male

DRUGS (1)
  1. GEMCITABINE [Suspect]
     Indication: ADENOCARCINOMA PANCREAS
     Dosage: FOR 3 WEEKS FOLLOWED BY 1 WEEK OF REST.

REACTIONS (1)
  - Thrombotic microangiopathy [Recovering/Resolving]
